FAERS Safety Report 25222529 (Version 1)
Quarter: 2025Q2

REPORT INFORMATION
  Report Type: Report from Study
  Country: US (occurrence: US)
  Receive Date: 20250421
  Receipt Date: 20250421
  Transmission Date: 20250716
  Serious: Yes (Hospitalization, Other)
  Sender: ABBVIE
  Company Number: US-ABBVIE-6233982

PATIENT
  Sex: Female

DRUGS (1)
  1. HUMIRA [Suspect]
     Active Substance: ADALIMUMAB
     Indication: Rheumatoid arthritis
     Route: 058
     Dates: start: 20230402

REACTIONS (4)
  - Hiatus hernia [Unknown]
  - Sleeve gastrectomy [Recovering/Resolving]
  - Gastric bypass [Unknown]
  - Post procedural complication [Unknown]
